FAERS Safety Report 12782341 (Version 2)
Quarter: 2016Q4

REPORT INFORMATION
  Report Type: Spontaneous
  Country: CN (occurrence: CN)
  Receive Date: 20160927
  Receipt Date: 20161012
  Transmission Date: 20170207
  Serious: Yes (Hospitalization, Other)
  Sender: FDA-Public Use
  Company Number: CN-ROCHE-1834900

PATIENT
  Age: 32 Year
  Sex: Female

DRUGS (2)
  1. ROCEPHIN [Suspect]
     Active Substance: CEFTRIAXONE SODIUM
     Indication: PYREXIA
     Route: 041
     Dates: start: 20160921, end: 20160922
  2. ROCEPHIN [Suspect]
     Active Substance: CEFTRIAXONE SODIUM
     Indication: INFECTION

REACTIONS (8)
  - Myalgia [Not Recovered/Not Resolved]
  - Dyspnoea [Recovering/Resolving]
  - Nausea [Not Recovered/Not Resolved]
  - Pyrexia [Recovering/Resolving]
  - Rash vesicular [Recovering/Resolving]
  - Rash [Recovering/Resolving]
  - Hallucination [Unknown]
  - Vomiting [Not Recovered/Not Resolved]

NARRATIVE: CASE EVENT DATE: 20160921
